FAERS Safety Report 22100613 (Version 1)
Quarter: 2023Q1

REPORT INFORMATION
  Report Type: Spontaneous
  Country: US (occurrence: US)
  Receive Date: 20230316
  Receipt Date: 20230316
  Transmission Date: 20230417
  Serious: Yes (Hospitalization, Other)
  Sender: FDA-Public Use
  Company Number: US-BRISTOL-MYERS SQUIBB COMPANY-2023-035354

PATIENT
  Age: 64 Year
  Sex: Male

DRUGS (1)
  1. POMALYST [Suspect]
     Active Substance: POMALIDOMIDE
     Indication: Plasma cell myeloma
     Dosage: FREQUENCY: QD.
     Route: 048
     Dates: start: 20221018, end: 20221212

REACTIONS (4)
  - Dyspnoea [Unknown]
  - Metabolic acidosis [Unknown]
  - Pulseless electrical activity [Unknown]
  - Septic shock [Unknown]

NARRATIVE: CASE EVENT DATE: 20221214
